FAERS Safety Report 8043047-9 (Version None)
Quarter: 2012Q1

REPORT INFORMATION
  Report Type: 
  Country: None (occurrence: None)
  Receive Date: 20120112
  Receipt Date: 20120105
  Transmission Date: 20120608
  Serious: Yes (Other)
  Sender: FDA-Public Use
  Company Number: PHHY2012DE001933

PATIENT
  Sex: Female

DRUGS (2)
  1. HERCEPTIN [Concomitant]
     Dates: start: 20110101
  2. FEMARA [Suspect]
     Indication: BREAST CANCER
     Dosage: 2.5 MG, UNK
     Route: 048
     Dates: start: 20110101

REACTIONS (1)
  - UVEITIS [None]
